FAERS Safety Report 4558209-2 (Version None)
Quarter: 2005Q1

REPORT INFORMATION
  Report Type: 
  Country: None (occurrence: None)
  Receive Date: 20050103
  Receipt Date: 20041025
  Transmission Date: 20050727
  Serious: Yes (Other)
  Sender: FDA-Public Use
  Company Number: 2004UW22144

PATIENT
  Age: 57 Year
  Sex: Female
  Weight: 71.667 kg

DRUGS (3)
  1. CRESTOR [Suspect]
     Indication: HYPERCHOLESTEROLAEMIA
     Dosage: 10 MG PO
     Route: 048
     Dates: start: 20041021, end: 20041024
  2. ATENOLOL [Concomitant]
  3. ACEON [Concomitant]

REACTIONS (2)
  - RASH MACULAR [None]
  - SKIN BURNING SENSATION [None]
